FAERS Safety Report 9888101 (Version 1)
Quarter: 2014Q1

REPORT INFORMATION
  Report Type: Spontaneous
  Country: PT (occurrence: PT)
  Receive Date: 20140211
  Receipt Date: 20140211
  Transmission Date: 20141002
  Serious: Yes (Hospitalization, Other)
  Sender: FDA-Public Use
  Company Number: PT-WATSON-2014-02004

PATIENT
  Sex: 0

DRUGS (1)
  1. METFORMIN (UNKNOWN) [Suspect]
     Indication: TYPE 2 DIABETES MELLITUS
     Dosage: 2600 MG, DAILY
     Route: 065

REACTIONS (3)
  - Renal failure acute [Recovered/Resolved]
  - Lactic acidosis [Unknown]
  - Gastrointestinal disorder [Unknown]
